FAERS Safety Report 12847833 (Version 1)
Quarter: 2016Q4

REPORT INFORMATION
  Report Type: Spontaneous
  Country: US (occurrence: US)
  Receive Date: 20161014
  Receipt Date: 20161014
  Transmission Date: 20170207
  Serious: No
  Sender: FDA-Public Use
  Company Number: US-FRI-1000086286

PATIENT
  Age: 2 Decade
  Sex: Female

DRUGS (3)
  1. VRAYLAR [Suspect]
     Active Substance: CARIPRAZINE
     Dosage: EITHER 1.5MG OR 3MG
     Route: 048
     Dates: start: 201606, end: 201607
  2. LAMICTAL [Concomitant]
     Active Substance: LAMOTRIGINE
     Dosage: UNK
     Route: 048
  3. SSI (UNSPECIFIED) [Concomitant]
     Dosage: UNK
     Route: 048

REACTIONS (2)
  - Haemoglobin decreased [Not Recovered/Not Resolved]
  - Haematocrit decreased [Not Recovered/Not Resolved]

NARRATIVE: CASE EVENT DATE: 201607
